FAERS Safety Report 8971707 (Version 1)
Quarter: 2012Q4

REPORT INFORMATION
  Report Type: 
  Country: AT (occurrence: AT)
  Receive Date: 20121217
  Receipt Date: 20121217
  Transmission Date: 20130627
  Serious: Yes (Other)
  Sender: FDA-Public Use
  Company Number: AT-ASTRAZENECA-2012SE92374

PATIENT
  Age: 23912 Day
  Sex: Female
  Weight: 108 kg

DRUGS (4)
  1. VIMOVO [Suspect]
     Indication: BONE PAIN
     Dosage: 2x1
     Route: 048
     Dates: start: 20121024, end: 20121105
  2. SEROPRAM [Concomitant]
     Indication: DEPRESSION
     Dosage: 1x1
     Route: 048
     Dates: start: 2009, end: 2009
  3. SYMBICORT DH [Concomitant]
     Indication: ASTHMA
  4. SPIRIVA [Concomitant]
     Indication: ASTHMA
     Dosage: 1-0-0
     Route: 055
     Dates: start: 2009, end: 2009

REACTIONS (1)
  - Oedema [Recovered/Resolved]
